FAERS Safety Report 9104204 (Version 1)
Quarter: 2013Q1

REPORT INFORMATION
  Report Type: Spontaneous
  Country: US (occurrence: US)
  Receive Date: 20130219
  Receipt Date: 20130219
  Transmission Date: 20140127
  Serious: Yes (Other)
  Sender: FDA-Public Use
  Company Number: US-PFIZER INC-2013058901

PATIENT
  Age: 56 Year
  Sex: Male
  Weight: 66.21 kg

DRUGS (4)
  1. LEVOTHYROXINE SODIUM [Suspect]
     Indication: THYROID DISORDER
     Dosage: 175 MG, 1X/DAY
  2. SERTRALINE HCL [Suspect]
     Dosage: 100 MG, 1X/DAY
  3. TRAMADOL HCL [Suspect]
     Indication: PAIN
     Dosage: 1 DF, AS NEEDED
  4. BACLOFEN [Suspect]
     Dosage: 10 MG, 3X/DAY

REACTIONS (2)
  - Hemiparesis [Unknown]
  - Intervertebral disc disorder [Unknown]
